FAERS Safety Report 7512418-9 (Version None)
Quarter: 2011Q2

REPORT INFORMATION
  Report Type: 
  Country: None (occurrence: None)
  Receive Date: 20110531
  Receipt Date: 20110519
  Transmission Date: 20111010
  Serious: Yes (Hospitalization)
  Sender: FDA-Public Use
  Company Number: JP-JNJFOC-20110506899

PATIENT
  Sex: Female
  Weight: 50 kg

DRUGS (7)
  1. REMICADE [Suspect]
     Dosage: 1ST DOSE
     Route: 042
     Dates: start: 20080624
  2. REMICADE [Suspect]
     Indication: RHEUMATOID ARTHRITIS
     Route: 042
     Dates: start: 20091027
  3. FOLIC ACID [Concomitant]
     Indication: PROPHYLAXIS
     Route: 048
     Dates: end: 20110326
  4. REMICADE [Suspect]
     Dosage: 20 TH DOSE
     Route: 042
     Dates: start: 20110315
  5. METHOTREXATE [Suspect]
     Indication: RHEUMATOID ARTHRITIS
     Route: 048
     Dates: start: 20100416, end: 20110324
  6. ETODOLAC [Concomitant]
     Indication: RHEUMATOID ARTHRITIS
     Route: 048
     Dates: start: 20070605
  7. OMERAN [Concomitant]
     Indication: PROPHYLAXIS
     Route: 048
     Dates: start: 20070605

REACTIONS (1)
  - PULMONARY TUBERCULOSIS [None]
